FAERS Safety Report 24364915 (Version 1)
Quarter: 2024Q3

REPORT INFORMATION
  Report Type: Report from Study
  Country: BR (occurrence: BR)
  Receive Date: 20240926
  Receipt Date: 20240926
  Transmission Date: 20241016
  Serious: Yes (Other)
  Sender: TAKEDA
  Company Number: BR-TAKEDA-2020TUS027634

PATIENT
  Age: 29 Year
  Sex: Female

DRUGS (6)
  1. VEDOLIZUMAB [Suspect]
     Active Substance: VEDOLIZUMAB
     Indication: Crohn^s disease
     Dosage: 300 MILLIGRAM
     Route: 042
     Dates: start: 20181201
  2. Daflon [Concomitant]
     Indication: Peripheral vascular disorder
     Dosage: 1000 MILLIGRAM, QD
     Route: 048
  3. Daflon [Concomitant]
     Indication: Thrombosis
  4. CAPILAREMA [Concomitant]
     Indication: Peripheral vascular disorder
     Dosage: 75 MILLIGRAM, QD
     Route: 048
  5. CAPILAREMA [Concomitant]
     Indication: Thrombosis
  6. CORTISONE [Concomitant]
     Active Substance: CORTISONE
     Dosage: UNK

REACTIONS (4)
  - Cholangitis sclerosing [Unknown]
  - Off label use [Unknown]
  - Hepatic enzyme abnormal [Unknown]
  - Hypersensitivity [Recovering/Resolving]

NARRATIVE: CASE EVENT DATE: 20200613
